FAERS Safety Report 18004849 (Version 1)
Quarter: 2020Q3

REPORT INFORMATION
  Report Type: Spontaneous
  Country: US (occurrence: US)
  Receive Date: 20200709
  Receipt Date: 20200709
  Transmission Date: 20201103
  Serious: Yes (Other)
  Sender: FDA-Public Use
  Company Number: None

PATIENT
  Age: 71 Year
  Sex: Male
  Weight: 89.6 kg

DRUGS (18)
  1. REMDESIVIR. [Suspect]
     Active Substance: REMDESIVIR
     Indication: COVID-19
     Route: 041
     Dates: start: 20200702, end: 20200706
  2. AROMATIC INHALER [Concomitant]
     Dates: start: 20200627, end: 20200708
  3. TUSSIONEX PENNKINETIC [Concomitant]
     Active Substance: CHLORPHENIRAMINE\HYDROCODONE
     Dates: start: 20200629, end: 20200708
  4. POTASSIUM BICARBONATE. [Concomitant]
     Active Substance: POTASSIUM BICARBONATE
     Dates: start: 20200628, end: 20200708
  5. DEXAMETHASONE. [Concomitant]
     Active Substance: DEXAMETHASONE
     Dates: start: 20200702, end: 20200707
  6. FAMOTIDINE. [Concomitant]
     Active Substance: FAMOTIDINE
     Dates: start: 20200626, end: 20200708
  7. HEPARIN [Concomitant]
     Active Substance: HEPARIN SODIUM
     Dates: start: 20200630, end: 20200708
  8. TERAZOSIN [Concomitant]
     Active Substance: TERAZOSIN HYDROCHLORIDE
     Dates: start: 20200627, end: 20200707
  9. ACETAMINOPHEN. [Concomitant]
     Active Substance: ACETAMINOPHEN
     Dates: start: 20200626, end: 20200708
  10. HYDRALAZINE [Concomitant]
     Active Substance: HYDRALAZINE HYDROCHLORIDE
     Dates: start: 20200626, end: 20200708
  11. TEMAZEPAM. [Concomitant]
     Active Substance: TEMAZEPAM
     Dates: start: 20200626, end: 20200708
  12. CEFTRIAXONE. [Concomitant]
     Active Substance: CEFTRIAXONE
     Dates: start: 20200629, end: 20200704
  13. ODNANSETRON [Concomitant]
     Dates: start: 20200628, end: 20200708
  14. NORTRIPTYLINE [Concomitant]
     Active Substance: NORTRIPTYLINE
     Dates: start: 20200628, end: 20200708
  15. ALBUTEROL. [Concomitant]
     Active Substance: ALBUTEROL
     Dates: start: 20200626, end: 20200708
  16. BENZANOTATE [Concomitant]
     Dates: start: 20200626, end: 20200708
  17. METOPROLOL. [Concomitant]
     Active Substance: METOPROLOL
     Dates: start: 20200627, end: 20200708
  18. GUANFENESIN [Concomitant]
     Dates: start: 20200626, end: 20200708

REACTIONS (2)
  - Alanine aminotransferase increased [None]
  - Aspartate aminotransferase increased [None]

NARRATIVE: CASE EVENT DATE: 20200706
